FAERS Safety Report 23152751 (Version 1)
Quarter: 2023Q4

REPORT INFORMATION
  Report Type: Spontaneous
  Country: CA (occurrence: CA)
  Receive Date: 20231107
  Receipt Date: 20231107
  Transmission Date: 20240109
  Serious: Yes (Other)
  Sender: FDA-Public Use
  Company Number: CA-JNJFOC-20231103493

PATIENT
  Sex: Female

DRUGS (3)
  1. IBUPROFEN [Suspect]
     Active Substance: IBUPROFEN
     Indication: Product used for unknown indication
     Route: 065
  2. IBRANCE [Suspect]
     Active Substance: PALBOCICLIB
     Indication: Product used for unknown indication
     Route: 065
  3. GELATIN [Suspect]
     Active Substance: GELATIN
     Indication: Product used for unknown indication
     Route: 065

REACTIONS (6)
  - Body surface area increased [Unknown]
  - Cough [Unknown]
  - Sneezing [Unknown]
  - Weight increased [Unknown]
  - Anaphylactic reaction [Unknown]
  - Drug hypersensitivity [Unknown]
